FAERS Safety Report 15710360 (Version 2)
Quarter: 2018Q4

REPORT INFORMATION
  Report Type: Report from Study
  Country: None (occurrence: DK)
  Receive Date: 20181211
  Receipt Date: 20181214
  Transmission Date: 20190205
  Serious: Yes (Death, Hospitalization)
  Sender: FDA-Public Use
  Company Number: DK-ABBVIE-18P-044-2579324-00

PATIENT
  Age: 71 Year
  Sex: Female

DRUGS (3)
  1. RO6870810 [Suspect]
     Active Substance: INVESTIGATIONAL PRODUCT
     Indication: DIFFUSE LARGE B-CELL LYMPHOMA
     Dosage: MOST RECENT DOSE PRIOR TO SAE ONSET ON 27 NOV 2018 ,ON DAYS 1-14 OF 21-DAY CYCLE
     Route: 058
     Dates: start: 20181113
  2. RITUXIMAB. [Suspect]
     Active Substance: RITUXIMAB
     Indication: DIFFUSE LARGE B-CELL LYMPHOMA
     Dosage: MOST RECENT DOSE  PRIOR TO SAE ONSET ON: 20 NOV 2018
     Route: 042
     Dates: start: 20181113
  3. VENETOCLAX. [Suspect]
     Active Substance: VENETOCLAX
     Indication: DIFFUSE LARGE B-CELL LYMPHOMA
     Dosage: MOST RECENT DOSE PRIOR TO SAE ONSET ON: 27 NOV 2018
     Route: 048
     Dates: start: 20181113

REACTIONS (1)
  - Pneumonia [Fatal]

NARRATIVE: CASE EVENT DATE: 20181126
